FAERS Safety Report 4429244-X (Version None)
Quarter: 2004Q3

REPORT INFORMATION
  Report Type: 
  Country: None (occurrence: None)
  Receive Date: 20040817
  Receipt Date: 20040817
  Transmission Date: 20050211
  Serious: Yes (Death, Hospitalization)
  Sender: FDA-Public Use
  Company Number: None

PATIENT
  Sex: Female
  Weight: 57.1532 kg

DRUGS (14)
  1. ARAVA [Suspect]
     Indication: RHEUMATOID ARTHRITIS
     Dosage: 20 MG DAILY ORAL
     Route: 048
     Dates: start: 20031111, end: 20040107
  2. SULFASALAZINE [Concomitant]
  3. NIFEDIPINE [Concomitant]
  4. TRIAMTERENE AND HYDROCHLOROTHIAZIDE [Concomitant]
  5. PREDNISONE [Concomitant]
  6. PROPOXYPHENE [Concomitant]
  7. LORATADINE [Concomitant]
  8. ACETAMINOPHEN [Concomitant]
  9. MULTI-VITAMINS [Concomitant]
  10. DOCUSATE [Concomitant]
  11. FOLIC ACID [Concomitant]
  12. PANTOPRAZOLE [Concomitant]
  13. FLONASE [Concomitant]
  14. CALCIUM CARBONATE [Concomitant]

REACTIONS (10)
  - CANDIDIASIS [None]
  - CRYPTOGENIC ORGANIZING PNEUMONIA [None]
  - DRUG ERUPTION [None]
  - PRURITUS [None]
  - RASH MACULO-PAPULAR [None]
  - RASH VESICULAR [None]
  - RESPIRATORY DISORDER [None]
  - RESPIRATORY FAILURE [None]
  - RHINITIS [None]
  - THERAPY NON-RESPONDER [None]
